FAERS Safety Report 8216679-2 (Version None)
Quarter: 2012Q1

REPORT INFORMATION
  Report Type: 
  Country: None (occurrence: None)
  Receive Date: 20120316
  Receipt Date: 20120312
  Transmission Date: 20120608
  Serious: Yes (Other)
  Sender: FDA-Public Use
  Company Number: US-PFIZER INC-2012066352

PATIENT
  Sex: Female
  Weight: 54 kg

DRUGS (2)
  1. CYTOMEL [Suspect]
     Indication: HYPOTHYROIDISM
     Dosage: UNK
     Dates: end: 20120106
  2. TIROSINT [Suspect]
     Indication: HYPOTHYROIDISM
     Dosage: 63 UG, ALTERNATE DAY
     Dates: start: 20110401

REACTIONS (4)
  - PALPITATIONS [None]
  - HYPERTENSION [None]
  - INSOMNIA [None]
  - HYPERTHYROIDISM [None]
